FAERS Safety Report 9326130 (Version 2)
Quarter: 2013Q2

REPORT INFORMATION
  Report Type: Spontaneous
  Country: US (occurrence: US)
  Receive Date: 20130604
  Receipt Date: 20130607
  Transmission Date: 20140414
  Serious: No
  Sender: FDA-Public Use
  Company Number: US-BAYER-2013-066397

PATIENT
  Age: 49 Year
  Sex: Female

DRUGS (1)
  1. CLIMARA PRO [Suspect]
     Route: 062

REACTIONS (4)
  - Hot flush [None]
  - Middle insomnia [Not Recovered/Not Resolved]
  - Product adhesion issue [None]
  - Hot flush [None]
